FAERS Safety Report 17208047 (Version 1)
Quarter: 2019Q4

REPORT INFORMATION
  Report Type: Report from Study
  Country: US (occurrence: US)
  Receive Date: 20191227
  Receipt Date: 20191227
  Transmission Date: 20200122
  Serious: Yes (Hospitalization)
  Sender: FDA-Public Use
  Company Number: US-JNJFOC-20191239706

PATIENT
  Age: 26 Year
  Sex: Female
  Weight: 44.7 kg

DRUGS (3)
  1. INFLIXIMAB, RECOMBINANT [Suspect]
     Active Substance: INFLIXIMAB
     Indication: INFLAMMATORY BOWEL DISEASE
     Route: 042
     Dates: start: 20060313
  2. USTEKINUMAB [Concomitant]
     Active Substance: USTEKINUMAB
     Route: 058
     Dates: start: 20171005
  3. USTEKINUMAB [Concomitant]
     Active Substance: USTEKINUMAB
     Route: 058
     Dates: start: 201702, end: 201704

REACTIONS (1)
  - Dysphagia [Recovered/Resolved]

NARRATIVE: CASE EVENT DATE: 20190701
